FAERS Safety Report 7239428-3 (Version None)
Quarter: 2011Q1

REPORT INFORMATION
  Report Type: 
  Country: None (occurrence: None)
  Receive Date: 20110121
  Receipt Date: 20110104
  Transmission Date: 20110831
  Serious: Yes (Hospitalization, Other)
  Sender: FDA-Public Use
  Company Number: PHHY2010US81380

PATIENT
  Sex: Male
  Weight: 81.2 kg

DRUGS (12)
  1. NORCO [Concomitant]
  2. FOLIC ACID [Concomitant]
  3. CYMBALTA [Concomitant]
  4. NYSTATIN [Concomitant]
  5. FLOMAX [Concomitant]
     Dosage: 0.4 MG, QD
  6. BENADRYL [Concomitant]
  7. AFINITOR [Suspect]
     Indication: METASTATIC RENAL CELL CARCINOMA
     Dosage: 10 MG, QD
     Route: 048
     Dates: start: 20101101, end: 20110101
  8. PAROXETINE HCL [Concomitant]
  9. SYNTHROID [Concomitant]
  10. LIDOCAINE HYDROCHLORIDE IN PLASTIC CONTAINER [Concomitant]
  11. UROCIT-K [Concomitant]
     Dosage: 02 DF, BID
     Route: 048
  12. MAALOX [Concomitant]

REACTIONS (27)
  - NEOPLASM MALIGNANT [None]
  - TACHYCARDIA [None]
  - MOUTH ULCERATION [None]
  - DECREASED APPETITE [None]
  - METASTASES TO LUNG [None]
  - BLOOD CHLORIDE DECREASED [None]
  - HYPOTHYROIDISM [None]
  - PLEURAL EFFUSION [None]
  - DEPRESSION [None]
  - BACK PAIN [None]
  - GLOMERULAR FILTRATION RATE DECREASED [None]
  - HAEMOGLOBIN DECREASED [None]
  - RED BLOOD CELL COUNT DECREASED [None]
  - VOMITING [None]
  - MOOD ALTERED [None]
  - DYSPHAGIA [None]
  - ASPARTATE AMINOTRANSFERASE INCREASED [None]
  - CARBON DIOXIDE INCREASED [None]
  - DRUG INEFFECTIVE [None]
  - PROTEIN TOTAL INCREASED [None]
  - BLOOD LACTATE DEHYDROGENASE INCREASED [None]
  - ANAEMIA [None]
  - OROPHARYNGEAL PAIN [None]
  - APHTHOUS STOMATITIS [None]
  - BLOOD ALBUMIN DECREASED [None]
  - HAEMATOCRIT DECREASED [None]
  - GLOSSODYNIA [None]
